FAERS Safety Report 23581177 (Version 1)
Quarter: 2024Q1

REPORT INFORMATION
  Report Type: Spontaneous
  Country: US (occurrence: None)
  Receive Date: 20240229
  Receipt Date: 20240229
  Transmission Date: 20240410
  Serious: Yes (Disabling)
  Sender: FDA-Public Use
  Company Number: None

PATIENT
  Age: 67 Year
  Sex: Female
  Weight: 79.2 kg

DRUGS (17)
  1. LEVOFLOXACIN [Suspect]
     Active Substance: LEVOFLOXACIN
     Indication: Pneumonia
     Dosage: OTHER QUANTITY : 1 TABLET(S);?FREQUENCY : DAILY;?
     Route: 048
     Dates: start: 20240129, end: 20240131
  2. DOXYCYCLINE [Suspect]
     Active Substance: DOXYCYCLINE
  3. OXYCODONE [Suspect]
     Active Substance: OXYCODONE\OXYCODONE HYDROCHLORIDE
  4. ACEBUTOLOL [Concomitant]
     Active Substance: ACEBUTOLOL
  5. OMEPRAZOLE [Concomitant]
     Active Substance: OMEPRAZOLE
  6. CLONAZEPAM [Concomitant]
     Active Substance: CLONAZEPAM
  7. ESCITALOPRAM [Concomitant]
     Active Substance: ESCITALOPRAM OXALATE
  8. IBUPROFEN [Concomitant]
     Active Substance: IBUPROFEN
  9. TYLENOL [Concomitant]
     Active Substance: ACETAMINOPHEN
  10. VITAMINS [Concomitant]
     Active Substance: VITAMINS
  11. HERBALS\TURMERIC [Concomitant]
     Active Substance: HERBALS\TURMERIC
  12. VITAMIN D [Concomitant]
     Active Substance: VITAMIN D NOS
  13. VITAMIN B12 [Concomitant]
     Active Substance: CYANOCOBALAMIN
  14. MAGNESIUM [Concomitant]
     Active Substance: MAGNESIUM
  15. MAGNESIUM [Concomitant]
     Active Substance: MAGNESIUM
  16. CALCIUM [Concomitant]
     Active Substance: CALCIUM
  17. FISH OIL [Concomitant]
     Active Substance: FISH OIL

REACTIONS (11)
  - Tendon pain [None]
  - Arthralgia [None]
  - Tendonitis [None]
  - Bursitis [None]
  - Head titubation [None]
  - Tremor [None]
  - Hypoaesthesia [None]
  - Arthralgia [None]
  - Postural orthostatic tachycardia syndrome [None]
  - Condition aggravated [None]
  - Presyncope [None]

NARRATIVE: CASE EVENT DATE: 20240130
